FAERS Safety Report 5308597-4 (Version None)
Quarter: 2007Q2

REPORT INFORMATION
  Report Type: 
  Country: None (occurrence: None)
  Receive Date: 20070426
  Receipt Date: 20070424
  Transmission Date: 20071010
  Serious: Yes (Hospitalization)
  Sender: FDA-Public Use
  Company Number: FR-AVENTIS-200610176FR

PATIENT
  Age: 41 Year
  Sex: Female

DRUGS (3)
  1. KETEK [Suspect]
     Indication: BRONCHITIS
     Route: 048
     Dates: start: 20051204, end: 20051204
  2. SOLUPRED                           /00016201/ [Suspect]
     Indication: BRONCHITIS
  3. DOLIPRANE [Concomitant]
     Indication: BRONCHITIS

REACTIONS (3)
  - TACHYCARDIA [None]
  - TREMOR [None]
  - VISION BLURRED [None]
